FAERS Safety Report 7735219-5 (Version None)
Quarter: 2011Q3

REPORT INFORMATION
  Report Type: 
  Country: None (occurrence: None)
  Receive Date: 20110907
  Receipt Date: 20110826
  Transmission Date: 20111222
  Serious: Yes (Hospitalization, Other)
  Sender: FDA-Public Use
  Company Number: JP-SANOFI-AVENTIS-2011SA047014

PATIENT
  Age: 67 Year
  Sex: Male
  Weight: 55 kg

DRUGS (6)
  1. HUMULIN N [Suspect]
     Indication: TYPE 1 DIABETES MELLITUS
     Route: 058
     Dates: start: 20110616
  2. LANTUS [Suspect]
     Indication: TYPE 1 DIABETES MELLITUS
     Dosage: DOSE: 19-0-1
     Route: 058
     Dates: start: 20100701, end: 20110615
  3. HUMALOG [Suspect]
     Indication: TYPE 1 DIABETES MELLITUS
     Dosage: DOSE: 5-5-5
     Route: 058
     Dates: start: 20100601
  4. LANTUS [Suspect]
     Route: 058
     Dates: start: 20110619
  5. SOLOSTAR [Suspect]
     Indication: DEVICE THERAPY
     Dates: start: 20110619
  6. SOLOSTAR [Suspect]
     Dates: start: 20100701, end: 20110615

REACTIONS (3)
  - ANTI-INSULIN ANTIBODY POSITIVE [None]
  - HYPERGLYCAEMIA [None]
  - DIABETIC KETOACIDOSIS [None]
